FAERS Safety Report 10087963 (Version 1)
Quarter: 2014Q2

REPORT INFORMATION
  Report Type: Spontaneous
  Country: US (occurrence: US)
  Receive Date: 20140419
  Receipt Date: 20140419
  Transmission Date: 20141212
  Serious: No
  Sender: FDA-Public Use
  Company Number: US-B.I. PHARMACEUTICALS,INC./RIDGEFIELD-2014-BI-16193BP

PATIENT
  Age: 89 Year
  Sex: Female
  Weight: 43 kg

DRUGS (2)
  1. SPIRIVA [Suspect]
     Indication: CHRONIC OBSTRUCTIVE PULMONARY DISEASE
     Dosage: 18 MG
     Route: 048
  2. SPIRIVA [Suspect]
     Dosage: 18 MG
     Route: 048

REACTIONS (1)
  - Incorrect route of drug administration [Recovered/Resolved]
